FAERS Safety Report 14878985 (Version 1)
Quarter: 2018Q2

REPORT INFORMATION
  Report Type: Spontaneous
  Country: US (occurrence: US)
  Receive Date: 20180511
  Receipt Date: 20180511
  Transmission Date: 20180711
  Serious: No
  Sender: FDA-Public Use
  Company Number: US-AMGEN-USASP2018061536

PATIENT
  Age: 62 Year
  Sex: Male

DRUGS (1)
  1. ENBREL [Suspect]
     Active Substance: ETANERCEPT
     Indication: RHEUMATOID ARTHRITIS
     Dosage: UNK UNK, QWK
     Route: 065
     Dates: start: 201803

REACTIONS (5)
  - Drug effect incomplete [Unknown]
  - Injection site erythema [Unknown]
  - Injection site inflammation [Recovered/Resolved]
  - Injection site pain [Not Recovered/Not Resolved]
  - Injection site warmth [Unknown]

NARRATIVE: CASE EVENT DATE: 2018
